FAERS Safety Report 9147948 (Version 2)
Quarter: 2013Q1

REPORT INFORMATION
  Report Type: Other
  Country: US (occurrence: US)
  Receive Date: 20130228
  Receipt Date: 20130314
  Transmission Date: 20140127
  Serious: Yes (Other)
  Sender: FDA-Public Use
  Company Number: US-RB-050386-13

PATIENT
  Sex: Female
  Weight: 2.17 kg

DRUGS (3)
  1. SUBOXONE [Suspect]
     Indication: DRUG DEPENDENCE
     Route: 064
  2. HYDROCODONE [Suspect]
     Indication: ABDOMINAL PAIN
     Dosage: MOTHER REPORTED USING ^OVER 20^ HYDROCODONE TABLETS PER DAY
     Route: 064
  3. COCAINE [Suspect]
     Indication: PRODUCT USED FOR UNKNOWN INDICATION
     Dosage: UNKNOWN DOSING DETAILS
     Route: 064

REACTIONS (3)
  - Foetal exposure during pregnancy [Recovered/Resolved]
  - Premature baby [Unknown]
  - Low birth weight baby [Unknown]
